FAERS Safety Report 8624316-8 (Version None)
Quarter: 2012Q3

REPORT INFORMATION
  Report Type: 
  Country: None (occurrence: None)
  Receive Date: 20120827
  Receipt Date: 20120803
  Transmission Date: 20120928
  Serious: Yes (Other)
  Sender: FDA-Public Use
  Company Number: FR-ACTELION-A-CH2011-48003

PATIENT
  Age: 62 Year
  Sex: Female

DRUGS (6)
  1. SPIRONOLACTONE [Concomitant]
  2. TRACLEER [Suspect]
     Dosage: 125 MG, BID
     Route: 048
     Dates: start: 20101025, end: 20101213
  3. TRACLEER [Suspect]
     Dosage: 62.5 MG, BID
     Route: 048
     Dates: start: 20100925, end: 20101024
  4. MOTILIUM [Concomitant]
  5. NEXIUM [Concomitant]
  6. TRACLEER [Suspect]
     Indication: DIGITAL ULCER
     Dosage: 62.5 MG, BID
     Route: 048
     Dates: start: 20101214, end: 20110215

REACTIONS (3)
  - DIARRHOEA [None]
  - VERTIGO [None]
  - ASTHENIA [None]
